FAERS Safety Report 4264125-6 (Version None)
Quarter: 2004Q1

REPORT INFORMATION
  Report Type: 
  Country: None (occurrence: None)
  Receive Date: 20040102
  Receipt Date: 20031216
  Transmission Date: 20041129
  Serious: Yes (Hospitalization)
  Sender: FDA-Public Use
  Company Number: 186237

PATIENT
  Age: 58 Year
  Sex: Female
  Weight: 72.5755 kg

DRUGS (7)
  1. AVONEX [Suspect]
     Indication: MULTIPLE SCLEROSIS
     Dosage: 30 MCG QW IM
     Route: 030
     Dates: start: 19960101
  2. BACLOFEN [Concomitant]
  3. OXYBUTYNIN [Concomitant]
  4. HYDROCHLOROTHIAZIDE [Concomitant]
  5. ZANAFLEX [Concomitant]
  6. ATENOLOL [Concomitant]
  7. ZESTRIL [Concomitant]

REACTIONS (4)
  - ASTHENIA [None]
  - BACTERIA BLOOD IDENTIFIED [None]
  - BACTERIAL INFECTION [None]
  - HYPERTENSION [None]
